FAERS Safety Report 6726389-6 (Version None)
Quarter: 2010Q2

REPORT INFORMATION
  Report Type: 
  Country: None (occurrence: None)
  Receive Date: 20100514
  Receipt Date: 20100505
  Transmission Date: 20101027
  Serious: Yes (Hospitalization)
  Sender: FDA-Public Use
  Company Number: B0650999A

PATIENT
  Sex: Female

DRUGS (9)
  1. REQUIP [Suspect]
     Dosage: .375MG PER DAY
     Route: 048
     Dates: end: 20100330
  2. COAPROVEL [Concomitant]
     Route: 065
  3. NOVOMIX [Concomitant]
     Route: 065
  4. LEVOTHYROXINE SODIUM [Concomitant]
     Route: 065
  5. NEXIUM [Concomitant]
     Route: 065
  6. KARDEGIC [Concomitant]
     Route: 065
  7. XALATAN [Concomitant]
     Route: 065
  8. LORAZEPAM [Concomitant]
     Route: 065
  9. DIOSMINE [Concomitant]
     Route: 065

REACTIONS (7)
  - CEREBRAL HAEMATOMA [None]
  - EXTRAPYRAMIDAL DISORDER [None]
  - GRAND MAL CONVULSION [None]
  - LOSS OF CONSCIOUSNESS [None]
  - MALAISE [None]
  - SUDDEN ONSET OF SLEEP [None]
  - TRAUMATIC BRAIN INJURY [None]
